FAERS Safety Report 9961567 (Version 3)
Quarter: 2014Q2

REPORT INFORMATION
  Report Type: Spontaneous
  Country: FR (occurrence: FR)
  Receive Date: 20140305
  Receipt Date: 20140507
  Transmission Date: 20141212
  Serious: Yes (Hospitalization, Other)
  Sender: FDA-Public Use
  Company Number: FR-JNJFOC-20140217859

PATIENT
  Age: 42 Year
  Sex: Male
  Weight: 44 kg

DRUGS (3)
  1. GOLIMUMAB [Suspect]
     Indication: SPONDYLITIS
     Route: 058
     Dates: start: 201210, end: 20140215
  2. TRAMADOL [Concomitant]
     Indication: SPONDYLITIS
     Route: 065
     Dates: start: 2006, end: 20140215
  3. INDOMETACINE [Concomitant]
     Indication: SPONDYLITIS
     Route: 065
     Dates: start: 2011, end: 20140215

REACTIONS (5)
  - Cardiac failure [Recovered/Resolved with Sequelae]
  - Congestive cardiomyopathy [Unknown]
  - Acute pulmonary oedema [Recovered/Resolved with Sequelae]
  - Dyspnoea [Unknown]
  - General physical health deterioration [Unknown]
